FAERS Safety Report 8087753-9 (Version None)
Quarter: 2012Q1

REPORT INFORMATION
  Report Type: 
  Country: None (occurrence: None)
  Receive Date: 20120128
  Receipt Date: 20110526
  Transmission Date: 20120608
  Serious: No
  Sender: FDA-Public Use
  Company Number: US-ABBOTT-11P-163-0728753-00

PATIENT
  Age: 56 Year
  Sex: Male

DRUGS (5)
  1. FISH OIL [Concomitant]
     Indication: MINERAL SUPPLEMENTATION
  2. HUMIRA [Suspect]
     Indication: PSORIASIS
     Dates: start: 20090101
  3. VIT A AND D [Concomitant]
     Indication: PSORIASIS
     Route: 061
  4. PAXIL [Concomitant]
     Indication: ANXIETY DISORDER
  5. PRILOSEC [Concomitant]
     Indication: DYSPEPSIA

REACTIONS (1)
  - INJECTION SITE INDURATION [None]
